FAERS Safety Report 10253174 (Version 1)
Quarter: 2014Q2

REPORT INFORMATION
  Report Type: Spontaneous
  Country: US (occurrence: None)
  Receive Date: 20140619
  Receipt Date: 20140619
  Transmission Date: 20141212
  Serious: Yes (Life-Threatening, Hospitalization, Disabling)
  Sender: FDA-Public Use
  Company Number: None

PATIENT
  Sex: Male
  Weight: 70.31 kg

DRUGS (1)
  1. TESTOSTERONE [Suspect]
     Dosage: ONE ML (200 MG) INTRA-MUSC EVERY 10 DAY
     Route: 030

REACTIONS (7)
  - Angina pectoris [None]
  - Dyspnoea [None]
  - Myocardial infarction [None]
  - Lung disorder [None]
  - Coronary arterial stent insertion [None]
  - Atrial fibrillation [None]
  - Cardiac output decreased [None]
